FAERS Safety Report 10071351 (Version 1)
Quarter: 2014Q2

REPORT INFORMATION
  Report Type: Spontaneous
  Country: US (occurrence: US)
  Receive Date: 20140410
  Receipt Date: 20140410
  Transmission Date: 20141212
  Serious: Yes (Life-Threatening, Hospitalization, Other)
  Sender: FDA-Public Use
  Company Number: US-ACTAVIS-2014-06706

PATIENT
  Age: 67 Year
  Sex: Female

DRUGS (4)
  1. VANCOMYCIN HCL (WATSON LABORATORIES) [Suspect]
     Indication: CELLULITIS
     Dosage: UNKNOWN, ADDED 2 DAYS AFTER CLINDAMYCIN
     Route: 042
  2. CLINDAMYCIN PHOSPHATE (AMALLC) [Suspect]
     Indication: CELLULITIS
     Dosage: UNKNOWN, STARTED ON THE FIRST DAY OF HOSPITALIZATION
     Route: 042
  3. CEFEPIME (UNKNOWN) [Suspect]
     Indication: CELLULITIS
     Dosage: UNKNOWN, STARTED ON DAY 5
     Route: 065
  4. LINEZOLID [Concomitant]
     Indication: CELLULITIS
     Dosage: UNKNOWN
     Route: 065

REACTIONS (4)
  - Acute generalised exanthematous pustulosis [Recovering/Resolving]
  - Hypotension [Recovered/Resolved]
  - Renal failure acute [Recovered/Resolved]
  - Lactic acidosis [Recovered/Resolved]
